FAERS Safety Report 4342130-9 (Version None)
Quarter: 2004Q1

REPORT INFORMATION
  Report Type: 
  Country: None (occurrence: None)
  Receive Date: 20040329
  Receipt Date: 20040203
  Transmission Date: 20041129
  Serious: No
  Sender: FDA-Public Use
  Company Number: 04P-163-0249311-00

PATIENT
  Age: 45 Year
  Sex: Female
  Weight: 131.5431 kg

DRUGS (6)
  1. HUMIRA [Suspect]
     Indication: RHEUMATOID ARTHRITIS
     Dosage: 40 MG 1 IN 2 WK SUBCUTANEOUS
     Route: 058
     Dates: start: 20031103, end: 20040129
  2. BUCINDOLOL HYDROCHLORIDE [Concomitant]
  3. PROPACET 100 [Concomitant]
  4. ALENDRONATE SODIUM [Concomitant]
  5. ASPIRIN [Concomitant]
  6. AMYTRIP [Concomitant]

REACTIONS (1)
  - RHEUMATOID ARTHRITIS [None]
